FAERS Safety Report 19678627 (Version 1)
Quarter: 2021Q3

REPORT INFORMATION
  Report Type: Spontaneous
  Country: CA (occurrence: CA)
  Receive Date: 20210809
  Receipt Date: 20210809
  Transmission Date: 20211014
  Serious: Yes (Other)
  Sender: FDA-Public Use
  Company Number: CA-ADVANZ PHARMA-202008008047

PATIENT

DRUGS (7)
  1. GAVISCON [ALUMINIUM HYDROXIDE;MAGNESIUM CARBONATE] [Concomitant]
     Indication: NAUSEA
     Dosage: UNK
     Dates: start: 2020
  2. PREMARIN [Concomitant]
     Active Substance: ESTROGENS, CONJUGATED
     Indication: HYSTERECTOMY
     Dosage: UNK
     Dates: start: 1995
  3. CELEBREX [Concomitant]
     Active Substance: CELECOXIB
     Dosage: UNK
     Dates: start: 2017
  4. HYDROXYCHLOROQUINE [Suspect]
     Active Substance: HYDROXYCHLOROQUINE
     Indication: PRODUCT USED FOR UNKNOWN INDICATION
     Dosage: 200 MG, BID
     Route: 065
     Dates: start: 2014
  5. RABEPRAZOLE [Concomitant]
     Active Substance: RABEPRAZOLE
     Indication: NAUSEA
     Dosage: UNK
     Dates: start: 2014
  6. GRAVOL [Concomitant]
     Active Substance: DIMENHYDRINATE
     Indication: NAUSEA
     Dosage: UNK
     Dates: start: 2020
  7. XELJANZ XR [Suspect]
     Active Substance: TOFACITINIB CITRATE
     Indication: RHEUMATOID ARTHRITIS
     Dosage: 11 MG, QD
     Route: 048
     Dates: start: 20200728

REACTIONS (44)
  - Chest pain [Unknown]
  - Pollakiuria [Unknown]
  - Somnolence [Unknown]
  - Patella fracture [Unknown]
  - Diarrhoea [Unknown]
  - Pain [Unknown]
  - Fatigue [Unknown]
  - Discomfort [Unknown]
  - Faeces discoloured [Unknown]
  - Frequent bowel movements [Unknown]
  - Oedema [Unknown]
  - Meniscus injury [Unknown]
  - Tremor [Unknown]
  - Abdominal pain upper [Unknown]
  - Gait disturbance [Unknown]
  - Joint swelling [Unknown]
  - Depressed mood [Unknown]
  - Anal incontinence [Unknown]
  - Arthropathy [Unknown]
  - Spinal pain [Unknown]
  - Weight abnormal [Unknown]
  - Osteoarthritis [Unknown]
  - Headache [Unknown]
  - Visual impairment [Unknown]
  - Chills [Unknown]
  - Eructation [Unknown]
  - Illness [Unknown]
  - Productive cough [Unknown]
  - Abdominal discomfort [Unknown]
  - Ageusia [Unknown]
  - Asthenia [Unknown]
  - Condition aggravated [Unknown]
  - Gallbladder disorder [Unknown]
  - Musculoskeletal chest pain [Unknown]
  - Peripheral coldness [Unknown]
  - Decreased appetite [Unknown]
  - Vision blurred [Unknown]
  - Nausea [Unknown]
  - Accommodation disorder [Unknown]
  - Back pain [Unknown]
  - Pyrexia [Unknown]
  - Skin indentation [Unknown]
  - Ulcer [Unknown]
  - Rash [Unknown]
